FAERS Safety Report 19440213 (Version 2)
Quarter: 2021Q3

REPORT INFORMATION
  Report Type: Other
  Country: US (occurrence: US)
  Receive Date: 20210621
  Receipt Date: 20210708
  Transmission Date: 20211014
  Serious: Yes (Hospitalization)
  Sender: FDA-Public Use
  Company Number: US-ROCHE-2849590

PATIENT
  Age: 46 Year
  Sex: Female
  Weight: 90.8 kg

DRUGS (9)
  1. OCREVUS [Suspect]
     Active Substance: OCRELIZUMAB
     Dosage: (PRESCRIBED AS 300 MG ON DAY 1 AND DAY 15 AND 600 MG ONCE IN 6 MONTHS)
     Route: 042
     Dates: start: 20200729
  2. LORAZEPAM. [Concomitant]
     Active Substance: LORAZEPAM
  3. ADDERALL [Concomitant]
     Active Substance: AMPHETAMINE ASPARTATE\AMPHETAMINE SULFATE\DEXTROAMPHETAMINE SACCHARATE\DEXTROAMPHETAMINE SULFATE
  4. IBUPROFEN. [Concomitant]
     Active Substance: IBUPROFEN
  5. OCREVUS [Suspect]
     Active Substance: OCRELIZUMAB
     Indication: RELAPSING-REMITTING MULTIPLE SCLEROSIS
     Dosage: INTIAL: 300MG IN 250ML ON DAY 1 AND 15, SUBSEQUENT: 600MG IN 500ML EVERY 6 MONTHS,?ONGOING?YES?LAST
     Route: 042
  6. ONDASETRON [Concomitant]
     Active Substance: ONDANSETRON
  7. METAXALONE. [Concomitant]
     Active Substance: METAXALONE
  8. WELLBUTRIN XL [Concomitant]
     Active Substance: BUPROPION HYDROCHLORIDE
     Indication: DEPRESSION
     Route: 048
     Dates: start: 202104
  9. SINGULAIR [Concomitant]
     Active Substance: MONTELUKAST SODIUM

REACTIONS (8)
  - Dehydration [Recovered/Resolved]
  - Mental impairment [Recovered/Resolved]
  - COVID-19 [Recovered/Resolved]
  - Acquired oesophageal web [Unknown]
  - Stress [Unknown]
  - Viral infection [Unknown]
  - Heart rate increased [Recovered/Resolved]
  - Depression [Not Recovered/Not Resolved]

NARRATIVE: CASE EVENT DATE: 202009
